FAERS Safety Report 17238124 (Version 1)
Quarter: 2020Q1

REPORT INFORMATION
  Report Type: Spontaneous
  Country: US (occurrence: US)
  Receive Date: 20200106
  Receipt Date: 20200106
  Transmission Date: 20200409
  Serious: No
  Sender: FDA-Public Use
  Company Number: US-PACIRA-201900300

PATIENT
  Age: 52 Year
  Sex: Female
  Weight: 153 kg

DRUGS (7)
  1. EXPAREL [Suspect]
     Active Substance: BUPIVACAINE
     Indication: GASTRECTOMY
     Dosage: EXPAREL 30 ML ADMIXED WITH NACL 100 ML AND MARCAINE 0.25% 30 ML
     Route: 058
     Dates: start: 20190909, end: 20190909
  2. MARCAINE [Suspect]
     Active Substance: BUPIVACAINE HYDROCHLORIDE
     Indication: GASTRECTOMY
     Dosage: EXPAREL 30 ML ADMIXED WITH NACL 100 ML AND MARCAINE 0.25% 30 ML
     Route: 058
     Dates: start: 20190909, end: 20190909
  3. LOVENOX [Concomitant]
     Active Substance: ENOXAPARIN SODIUM
     Indication: THROMBOSIS PROPHYLAXIS
     Dosage: TWICE DAILY
     Route: 058
     Dates: start: 20190909
  4. LIDOCAINE. [Concomitant]
     Active Substance: LIDOCAINE
     Indication: ANAESTHESIA
     Dosage: UNKNOWN
     Route: 065
     Dates: start: 20190909, end: 20190909
  5. BUPIVACAINE. [Concomitant]
     Active Substance: BUPIVACAINE
     Indication: ANAESTHESIA
     Dosage: UNKNOWN
     Route: 065
     Dates: start: 20190909, end: 20190909
  6. NACL [Suspect]
     Active Substance: SODIUM CHLORIDE
     Indication: GASTRECTOMY
     Dosage: EXPAREL 30 ML ADMIXED WITH NACL 100 ML AND MARCAINE 0.25% 30 ML
     Route: 058
     Dates: start: 20190909, end: 20190909
  7. ROCURONIUM [Concomitant]
     Active Substance: ROCURONIUM BROMIDE
     Indication: ANAESTHESIA
     Dosage: UNKNOWN
     Route: 065
     Dates: start: 20190909, end: 20190909

REACTIONS (1)
  - Incision site rash [Not Recovered/Not Resolved]
